FAERS Safety Report 7503986-1 (Version None)
Quarter: 2011Q2

REPORT INFORMATION
  Report Type: 
  Country: None (occurrence: None)
  Receive Date: 20110525
  Receipt Date: 20110511
  Transmission Date: 20111010
  Serious: Yes (Life-Threatening)
  Sender: FDA-Public Use
  Company Number: JP-JNJFOC-20110506335

PATIENT
  Age: 76 Year
  Sex: Male
  Weight: 50 kg

DRUGS (6)
  1. METHOTREXATE [Concomitant]
     Route: 048
  2. REMICADE [Suspect]
     Indication: RHEUMATOID ARTHRITIS
     Dosage: 19TH DOSE
     Route: 042
     Dates: start: 20110502
  3. REMICADE [Suspect]
     Route: 042
     Dates: start: 20090511
  4. PREDNISOLONE [Concomitant]
     Route: 048
  5. PREDNISOLONE [Concomitant]
     Route: 065
     Dates: start: 20110502, end: 20110502
  6. REMICADE [Suspect]
     Route: 042

REACTIONS (4)
  - URINARY RETENTION [None]
  - TACHYCARDIA [None]
  - RASH GENERALISED [None]
  - BLOOD PRESSURE INCREASED [None]
